FAERS Safety Report 7274519-2 (Version None)
Quarter: 2011Q1

REPORT INFORMATION
  Report Type: 
  Country: None (occurrence: None)
  Receive Date: 20110201
  Receipt Date: 20110201
  Transmission Date: 20110831
  Serious: Yes (Death)
  Sender: FDA-Public Use
  Company Number: None

PATIENT
  Age: 71 Year
  Sex: Male
  Weight: 87.5 kg

DRUGS (10)
  1. CLOFARABINE [Suspect]
     Indication: ACUTE MYELOID LEUKAEMIA
     Dosage: 30.8MG, ONCE IV
     Route: 042
     Dates: start: 20101029
  2. CLOFARABINE [Suspect]
     Indication: MYELODYSPLASTIC SYNDROME
     Dosage: 30.8MG, ONCE IV
     Route: 042
     Dates: start: 20101029
  3. CLOFARABINE [Suspect]
     Indication: ACUTE MYELOID LEUKAEMIA
     Dosage: 30.8MG, ONCE IV
     Route: 042
     Dates: start: 20101025
  4. CLOFARABINE [Suspect]
     Indication: MYELODYSPLASTIC SYNDROME
     Dosage: 30.8MG, ONCE IV
     Route: 042
     Dates: start: 20101025
  5. CLOFARABINE [Suspect]
     Indication: ACUTE MYELOID LEUKAEMIA
     Dosage: 60MG ,ONCE,PO
     Route: 048
     Dates: start: 20101027
  6. CLOFARABINE [Suspect]
     Indication: MYELODYSPLASTIC SYNDROME
     Dosage: 60MG ,ONCE,PO
     Route: 048
     Dates: start: 20101027
  7. CLOFARABINE [Suspect]
     Indication: ACUTE MYELOID LEUKAEMIA
     Dosage: 60MG ,ONCE,PO
     Route: 048
     Dates: start: 20101031
  8. CLOFARABINE [Suspect]
     Indication: MYELODYSPLASTIC SYNDROME
     Dosage: 60MG ,ONCE,PO
     Route: 048
     Dates: start: 20101031
  9. CLOFARABINE [Suspect]
     Indication: ACUTE MYELOID LEUKAEMIA
     Dosage: 60MG ,ONCE,PO
     Route: 048
     Dates: start: 20101030
  10. CLOFARABINE [Suspect]
     Indication: MYELODYSPLASTIC SYNDROME
     Dosage: 60MG ,ONCE,PO
     Route: 048
     Dates: start: 20101030

REACTIONS (3)
  - VIITH NERVE PARALYSIS [None]
  - CEREBRAL HAEMORRHAGE [None]
  - ASTHENIA [None]
